FAERS Safety Report 25986966 (Version 1)
Quarter: 2025Q4

REPORT INFORMATION
  Report Type: Spontaneous
  Country: EU (occurrence: EU)
  Receive Date: 20251102
  Receipt Date: 20251102
  Transmission Date: 20260118
  Serious: Yes (Other)
  Sender: RISING PHARMACEUTICALS
  Company Number: EU-RISINGPHARMA-DE-2025RISLIT00561

PATIENT
  Age: 67 Year
  Sex: Female

DRUGS (3)
  1. ACETAZOLAMIDE [Suspect]
     Active Substance: ACETAZOLAMIDE
     Indication: Prophylaxis
     Route: 042
  2. ACETAZOLAMIDE [Suspect]
     Active Substance: ACETAZOLAMIDE
     Route: 048
  3. DEXAMETHASONE\NEOMYCIN SULFATE\POLYMYXIN B SULFATE [Concomitant]
     Active Substance: DEXAMETHASONE\NEOMYCIN SULFATE\POLYMYXIN B SULFATE
     Indication: Product used for unknown indication
     Route: 061

REACTIONS (2)
  - Choroidal detachment [Recovered/Resolved]
  - Anterior chamber disorder [Recovered/Resolved]
